FAERS Safety Report 24242372 (Version 1)
Quarter: 2024Q3

REPORT INFORMATION
  Report Type: Spontaneous
  Country: US (occurrence: US)
  Receive Date: 20240823
  Receipt Date: 20240823
  Transmission Date: 20241016
  Serious: No
  Sender: APOTEX
  Company Number: US-APOTEX-2023AP016522

PATIENT
  Age: 39 Year
  Sex: Female

DRUGS (10)
  1. TEMOZOLOMIDE [Suspect]
     Active Substance: TEMOZOLOMIDE
     Indication: Isocitrate dehydrogenase gene mutation
     Dosage: 50 MILLIGRAM/SQ. METER, QD (THERAPY DURATION: 1.6 MONTHS)
     Route: 065
  2. TEMOZOLOMIDE [Suspect]
     Active Substance: TEMOZOLOMIDE
     Indication: Astrocytoma
  3. OLAPARIB [Suspect]
     Active Substance: OLAPARIB
     Indication: Isocitrate dehydrogenase gene mutation
     Dosage: 150 MILLIGRAM, T.I.W (THERAPY DURATION: 1.6 MONTHS)
     Route: 065
  4. OLAPARIB [Suspect]
     Active Substance: OLAPARIB
     Indication: Astrocytoma
  5. IVOSIDENIB [Suspect]
     Active Substance: IVOSIDENIB
     Indication: Isocitrate dehydrogenase gene mutation
     Dosage: UNK, (THERAPY DURATION: 1.6 MONTHS)
     Route: 065
  6. IVOSIDENIB [Suspect]
     Active Substance: IVOSIDENIB
     Indication: Astrocytoma
  7. PEMBROLIZUMAB [Suspect]
     Active Substance: PEMBROLIZUMAB
     Indication: Isocitrate dehydrogenase gene mutation
     Dosage: UNK, (THERAPY DURATION: 1.6 MONTHS)
     Route: 065
  8. PEMBROLIZUMAB [Suspect]
     Active Substance: PEMBROLIZUMAB
     Indication: Astrocytoma
  9. BEVACIZUMAB [Suspect]
     Active Substance: BEVACIZUMAB
     Indication: Isocitrate dehydrogenase gene mutation
     Dosage: UNK, (THERAPY DURATION: 1.6 MONTHS)
     Route: 065
  10. BEVACIZUMAB [Suspect]
     Active Substance: BEVACIZUMAB
     Indication: Astrocytoma

REACTIONS (6)
  - Weight decreased [Unknown]
  - Diarrhoea [Unknown]
  - Vomiting [Unknown]
  - Lymphopenia [Unknown]
  - Fatigue [Unknown]
  - Nausea [Unknown]
